FAERS Safety Report 6448707-9 (Version None)
Quarter: 2009Q4

REPORT INFORMATION
  Report Type: 
  Country: None (occurrence: None)
  Receive Date: 20091119
  Receipt Date: 20091119
  Transmission Date: 20100525
  Serious: Yes (Hospitalization)
  Sender: FDA-Public Use
  Company Number: None

PATIENT
  Sex: Male
  Weight: 76.1 kg

DRUGS (1)
  1. CISPLATIN [Suspect]
     Dosage: 378 MG
     Dates: end: 20090210

REACTIONS (4)
  - CANDIDIASIS [None]
  - CLOSTRIDIUM DIFFICILE COLITIS [None]
  - RADIATION ASSOCIATED PAIN [None]
  - STOMATITIS [None]
